FAERS Safety Report 5765094-X (Version None)
Quarter: 2008Q2

REPORT INFORMATION
  Report Type: 
  Country: None (occurrence: None)
  Receive Date: 20080611
  Receipt Date: 20080530
  Transmission Date: 20081010
  Serious: Yes (Hospitalization)
  Sender: FDA-Public Use
  Company Number: US-JNJFOC-20080600637

PATIENT
  Sex: Female
  Weight: 95.1 kg

DRUGS (17)
  1. DOXIL [Suspect]
     Route: 042
  2. DOXIL [Suspect]
     Indication: OVARIAN CANCER
     Dosage: 3 CYCLES, 40MG/M2
     Route: 042
  3. TELCYTA [Suspect]
     Route: 042
  4. TELCYTA [Suspect]
     Indication: OVARIAN CANCER
     Dosage: 3 CYCLES, 1000MG/M2
     Route: 042
  5. DOXEPIN HCL [Concomitant]
     Route: 065
  6. ZYRTEC [Concomitant]
     Route: 065
  7. VITAMINS [Concomitant]
     Route: 065
  8. ASPIRIN [Concomitant]
     Route: 065
  9. MAGNESIUM [Concomitant]
     Route: 065
  10. POTASSIUM CHLORIDE [Concomitant]
     Route: 065
  11. PEPCID [Concomitant]
     Route: 065
  12. COUMADIN [Concomitant]
     Route: 065
  13. BENADRYL [Concomitant]
     Route: 065
  14. LIDEX [Concomitant]
     Route: 065
  15. TYLENOL [Concomitant]
     Route: 065
  16. POTASSIUM CHLORIDE [Concomitant]
     Route: 065
  17. SODIUM CHLORIDE [Concomitant]
     Route: 065

REACTIONS (2)
  - PYREXIA [None]
  - RESPIRATORY FAILURE [None]
